FAERS Safety Report 8092979-4 (Version None)
Quarter: 2012Q1

REPORT INFORMATION
  Report Type: 
  Country: None (occurrence: None)
  Receive Date: 20120131
  Receipt Date: 20120125
  Transmission Date: 20120608
  Serious: Yes (Hospitalization)
  Sender: FDA-Public Use
  Company Number: US-ACTELION-A-US2011-58620

PATIENT

DRUGS (4)
  1. REVATIO [Concomitant]
  2. VENTAVIS [Suspect]
     Indication: PULMONARY ARTERIAL HYPERTENSION
     Dosage: UNK
     Route: 055
     Dates: start: 20110614
  3. TRACLEER [Concomitant]
     Indication: PULMONARY ARTERIAL HYPERTENSION
     Dosage: UNK
     Route: 048
  4. EXJADE [Concomitant]

REACTIONS (6)
  - CATHETER PLACEMENT [None]
  - DEVICE RELATED INFECTION [None]
  - ATRIAL FIBRILLATION [None]
  - SICKLE CELL ANAEMIA WITH CRISIS [None]
  - DRUG DOSE OMISSION [None]
  - DYSPNOEA [None]
